FAERS Safety Report 16023537 (Version 1)
Quarter: 2019Q1

REPORT INFORMATION
  Report Type: Report from Study
  Country: ES (occurrence: ES)
  Receive Date: 20190301
  Receipt Date: 20190301
  Transmission Date: 20190418
  Serious: Yes (Other)
  Sender: FDA-Public Use
  Company Number: ES-CURIUM-201900049

PATIENT
  Age: 67 Year
  Sex: Female

DRUGS (1)
  1. 11IN-DTPA-OCTREOTIDE (INDIUM IN-111 PENTETREOTIDE) [Suspect]
     Active Substance: INDIUM IN-111 PENTETREOTIDE
     Indication: CARCINOID TUMOUR
     Route: 065

REACTIONS (4)
  - Deafness neurosensory [None]
  - Hyporeflexia [None]
  - Ototoxicity [Recovering/Resolving]
  - Deafness neurosensory [Recovering/Resolving]
